FAERS Safety Report 10085308 (Version 2)
Quarter: 2014Q2

REPORT INFORMATION
  Report Type: Spontaneous
  Country: US (occurrence: US)
  Receive Date: 20140417
  Receipt Date: 20140610
  Transmission Date: 20141212
  Serious: No
  Sender: FDA-Public Use
  Company Number: US-GILEAD-2014-0099555

PATIENT
  Sex: Female

DRUGS (3)
  1. SOVALDI [Suspect]
     Indication: HEPATITIS C
     Dosage: UNK
     Route: 065
     Dates: start: 20140321
  2. RIBAVIRIN [Concomitant]
  3. PEGINTRON /01543001/ [Concomitant]

REACTIONS (2)
  - Blister [Unknown]
  - Rash [Recovered/Resolved]
